FAERS Safety Report 5085378-0 (Version None)
Quarter: 2006Q3

REPORT INFORMATION
  Report Type: 
  Country: None (occurrence: None)
  Receive Date: 20060731
  Receipt Date: 20060418
  Transmission Date: 20061208
  Serious: Yes (Other)
  Sender: FDA-Public Use
  Company Number: 200610783BWH

PATIENT
  Sex: Female

DRUGS (2)
  1. AVELOX [Suspect]
     Indication: SINUSITIS
  2. NOVACAIN [Concomitant]

REACTIONS (4)
  - ALTERED VISUAL DEPTH PERCEPTION [None]
  - EYE DISORDER [None]
  - INSOMNIA [None]
  - VISUAL DISTURBANCE [None]
